FAERS Safety Report 5007632-0 (Version None)
Quarter: 2006Q2

REPORT INFORMATION
  Report Type: 
  Country: None (occurrence: None)
  Receive Date: 20060522
  Receipt Date: 20060419
  Transmission Date: 20061013
  Serious: Yes (Hospitalization, Other)
  Sender: FDA-Public Use
  Company Number: 2006AP01873

PATIENT
  Age: 27147 Day
  Sex: Female
  Weight: 50 kg

DRUGS (5)
  1. TENORMIN [Suspect]
     Indication: ATRIAL FIBRILLATION
     Route: 048
     Dates: start: 20060404, end: 20060410
  2. OMEPRAL [Concomitant]
     Route: 048
     Dates: start: 20060320
  3. VASOLAN [Concomitant]
     Indication: TACHYCARDIA
     Route: 048
     Dates: start: 20060206, end: 20060410
  4. VASOLAN [Concomitant]
     Indication: ATRIAL FIBRILLATION
     Route: 048
     Dates: start: 20060206, end: 20060410
  5. VASOLAN [Concomitant]
     Indication: HYPERTENSION
     Route: 048
     Dates: start: 20060206, end: 20060410

REACTIONS (5)
  - BLOOD URIC ACID INCREASED [None]
  - HYPOAESTHESIA [None]
  - LIVER DISORDER [None]
  - MUSCULAR WEAKNESS [None]
  - PLATELET COUNT DECREASED [None]
